FAERS Safety Report 7150422-3 (Version None)
Quarter: 2010Q4

REPORT INFORMATION
  Report Type: 
  Country: None (occurrence: None)
  Receive Date: 20101210
  Receipt Date: 20101129
  Transmission Date: 20110411
  Serious: Yes (Other)
  Sender: FDA-Public Use
  Company Number: PHHY2010US81516

PATIENT
  Age: 21 Year
  Sex: Female

DRUGS (1)
  1. RECLAST [Suspect]
     Dosage: 5 MG, UNK
     Route: 042

REACTIONS (4)
  - AMENORRHOEA [None]
  - ANGELMAN'S SYNDROME [None]
  - INFLUENZA LIKE ILLNESS [None]
  - VAGINAL HAEMORRHAGE [None]
